FAERS Safety Report 7814628-X (Version None)
Quarter: 2011Q4

REPORT INFORMATION
  Report Type: 
  Country: None (occurrence: None)
  Receive Date: 20111012
  Receipt Date: 20111004
  Transmission Date: 20120403
  Serious: Yes (Other)
  Sender: FDA-Public Use
  Company Number: NGX_00613_2011

PATIENT
  Sex: Female
  Weight: 100 kg

DRUGS (2)
  1. QUTENZA [Suspect]
     Indication: NEURALGIA
     Dosage: (537 MG 1X TOPICAL)
     Route: 061
     Dates: start: 20110913, end: 20110913
  2. TILIDIN (TILIDIN) 50 MG (NOT SPECIFIED) [Suspect]
     Indication: NEURALGIA
     Dosage: (50 MG 1X ORAL)
     Route: 048
     Dates: start: 20110914, end: 20110914

REACTIONS (4)
  - PAIN [None]
  - APALLIC SYNDROME [None]
  - NAUSEA [None]
  - APPLICATION SITE PAIN [None]
